FAERS Safety Report 7684749-3 (Version None)
Quarter: 2011Q3

REPORT INFORMATION
  Report Type: 
  Country: None (occurrence: None)
  Receive Date: 20110816
  Receipt Date: 20110803
  Transmission Date: 20111222
  Serious: Yes (Other)
  Sender: FDA-Public Use
  Company Number: US-ELI_LILLY_AND_COMPANY-US201106005166

PATIENT
  Sex: Female

DRUGS (3)
  1. FORTEO [Suspect]
     Dosage: 20 UG, QD
  2. FORTEO [Suspect]
     Indication: OSTEOPOROSIS
     Dosage: 20 UG, QD
     Dates: start: 20101101
  3. FORTEO [Suspect]
     Dosage: 20 UG, QD

REACTIONS (5)
  - RENAL CYST [None]
  - FEELING ABNORMAL [None]
  - PAIN [None]
  - ARTHRALGIA [None]
  - PAIN IN EXTREMITY [None]
